FAERS Safety Report 12450659 (Version 1)
Quarter: 2016Q2

REPORT INFORMATION
  Report Type: Spontaneous
  Country: US (occurrence: None)
  Receive Date: 20160608
  Receipt Date: 20160608
  Transmission Date: 20160815
  Serious: Yes (Hospitalization, Other)
  Sender: FDA-Public Use
  Company Number: None

PATIENT
  Age: 70 Year
  Sex: Male
  Weight: 95.26 kg

DRUGS (8)
  1. PLAVIX [Concomitant]
     Active Substance: CLOPIDOGREL BISULFATE
  2. CPAP [Concomitant]
     Active Substance: DEVICE
  3. ZOLOFT [Concomitant]
     Active Substance: SERTRALINE HYDROCHLORIDE
  4. ANDROGEL 1.62% [Suspect]
     Active Substance: TESTOSTERONE
     Indication: BLOOD TESTOSTERONE DECREASED
     Dosage: 20.25 PUMP ONCE A DAY APPLIED TO A SURFACE, USUALLY THE SKIN
     Route: 061
     Dates: start: 20130117, end: 20160428
  5. ANDROGEL 1.62% [Suspect]
     Active Substance: TESTOSTERONE
     Indication: FATIGUE
     Dosage: 20.25 PUMP ONCE A DAY APPLIED TO A SURFACE, USUALLY THE SKIN
     Route: 061
     Dates: start: 20130117, end: 20160428
  6. ASPIRIN. [Concomitant]
     Active Substance: ASPIRIN
  7. ZOCOR [Concomitant]
     Active Substance: SIMVASTATIN
  8. CENTRUM SILVER [Concomitant]
     Active Substance: MINERALS\VITAMINS

REACTIONS (2)
  - Brain stem thrombosis [None]
  - Cerebrovascular accident [None]

NARRATIVE: CASE EVENT DATE: 20160429
